FAERS Safety Report 5689438-2 (Version None)
Quarter: 2008Q1

REPORT INFORMATION
  Report Type: 
  Country: None (occurrence: None)
  Receive Date: 20080331
  Receipt Date: 20080319
  Transmission Date: 20080703
  Serious: Yes (Hospitalization)
  Sender: FDA-Public Use
  Company Number: US-AMGEN-QUU270516

PATIENT
  Sex: Male

DRUGS (2)
  1. ENBREL [Suspect]
     Indication: RHEUMATOID ARTHRITIS
     Route: 058
     Dates: start: 20070101
  2. PLAQUENIL [Concomitant]
     Dates: start: 20070101

REACTIONS (4)
  - COUGH [None]
  - INTERVERTEBRAL DISC COMPRESSION [None]
  - LATEX ALLERGY [None]
  - RESPIRATORY TRACT CONGESTION [None]
